FAERS Safety Report 10656772 (Version 3)
Quarter: 2015Q1

REPORT INFORMATION
  Report Type: Report from Study
  Country: DE (occurrence: DE)
  Receive Date: 20141217
  Receipt Date: 20150216
  Transmission Date: 20150720
  Serious: Yes (Hospitalization)
  Sender: FDA-Public Use
  Company Number: DE-BEH-2014043400

PATIENT
  Age: 77 Year
  Sex: Male
  Weight: 84 kg

DRUGS (8)
  1. PRIVIGEN [Suspect]
     Active Substance: HUMAN IMMUNOGLOBULIN G
     Indication: INFECTION
     Dosage: DURATION 60 - 90 MIN
     Route: 042
     Dates: start: 20131011, end: 20131011
  2. FLUDARABINE [Suspect]
     Active Substance: FLUDARABINE PHOSPHATE
     Indication: CHRONIC LYMPHOCYTIC LEUKAEMIA
     Dates: start: 20131028, end: 20131031
  3. AMOXYCYLIN [Concomitant]
     Dosage: STRENGTH: 1000 (UNIT NOT PROVIDED), 3X1
  4. PRIVIGEN [Suspect]
     Active Substance: HUMAN IMMUNOGLOBULIN G
     Indication: SECONDARY IMMUNODEFICIENCY
     Dosage: INFUSION DURATION 60 - 90 MIN
     Route: 042
     Dates: start: 20131121, end: 20131121
  5. PRIVIGEN [Suspect]
     Active Substance: HUMAN IMMUNOGLOBULIN G
     Indication: CHRONIC LYMPHOCYTIC LEUKAEMIA
     Route: 042
     Dates: start: 20131219, end: 20131219
  6. CYCLOPHOSPHAMIDE. [Suspect]
     Active Substance: CYCLOPHOSPHAMIDE
     Indication: CHRONIC LYMPHOCYTIC LEUKAEMIA
     Dates: start: 20131028, end: 20131031
  7. RITUXIMAB [Suspect]
     Active Substance: RITUXIMAB
     Indication: CHRONIC LYMPHOCYTIC LEUKAEMIA
     Dates: start: 20131028, end: 20131031
  8. ALLOPURINOL. [Concomitant]
     Active Substance: ALLOPURINOL

REACTIONS (10)
  - Chronic lymphocytic leukaemia [Recovering/Resolving]
  - Febrile neutropenia [Recovered/Resolved]
  - Body temperature increased [Recovered/Resolved]
  - Leukopenia [Recovered/Resolved]
  - Bronchitis [Recovered/Resolved]
  - Neutropenia [Recovered/Resolved]
  - Productive cough [Recovered/Resolved]
  - Pancytopenia [Recovered/Resolved]
  - General physical health deterioration [Recovered/Resolved]
  - Chills [Recovered/Resolved]

NARRATIVE: CASE EVENT DATE: 201310
